FAERS Safety Report 9255571 (Version 9)
Quarter: 2013Q4

REPORT INFORMATION
  Report Type: Spontaneous
  Country: US (occurrence: US)
  Receive Date: 20130425
  Receipt Date: 20131103
  Transmission Date: 20140711
  Serious: Yes (Hospitalization, Other)
  Sender: FDA-Public Use
  Company Number: US-009507513-1304USA015282

PATIENT
  Age: 57 Year
  Sex: Male
  Weight: 82 kg

DRUGS (5)
  1. PEG-INTRON [Suspect]
     Indication: HEPATITIS C
     Dosage: REDIPEN
     Route: 065
     Dates: start: 20130410
  2. REBETOL [Suspect]
     Indication: HEPATITIS C
     Dosage: 600 MG, AM, 600 MG PM
     Route: 048
     Dates: start: 20130410, end: 201307
  3. REBETOL [Suspect]
     Dosage: 800 MG, QD
     Route: 048
     Dates: start: 201307
  4. VICTRELIS [Suspect]
     Indication: HEPATITIS C
     Dosage: UNK
     Route: 048
     Dates: start: 20130508
  5. CITALOPRAM [Concomitant]
     Indication: DEPRESSION
     Dosage: UNK
     Dates: start: 201205

REACTIONS (18)
  - Full blood count decreased [Unknown]
  - Transfusion [Unknown]
  - Red blood cell count decreased [Unknown]
  - Unevaluable event [Unknown]
  - Pain of skin [Unknown]
  - Abdominal discomfort [Unknown]
  - Injection site erythema [Unknown]
  - Weight decreased [Unknown]
  - Irritability [Unknown]
  - Weight decreased [Unknown]
  - Anxiety [Unknown]
  - Dry skin [Unknown]
  - Anaemia [Recovering/Resolving]
  - Asthenia [Unknown]
  - Pruritus [Unknown]
  - Depressed mood [Unknown]
  - Dry skin [Unknown]
  - Alopecia [Unknown]
